FAERS Safety Report 24007343 (Version 1)
Quarter: 2024Q2

REPORT INFORMATION
  Report Type: Report from Study
  Country: US (occurrence: US)
  Receive Date: 20240624
  Receipt Date: 20240624
  Transmission Date: 20240715
  Serious: No
  Sender: FDA-Public Use
  Company Number: US-AstraZeneca-CH-00647304A

PATIENT
  Sex: Female

DRUGS (1)
  1. ULTOMIRIS [Suspect]
     Active Substance: RAVULIZUMAB-CWVZ
     Indication: Neuromyelitis optica spectrum disorder
     Route: 042

REACTIONS (6)
  - Muscle discomfort [Unknown]
  - Feeling of body temperature change [Unknown]
  - Bladder spasm [Unknown]
  - Dizziness [Unknown]
  - Fatigue [Recovered/Resolved]
  - Headache [Unknown]
